FAERS Safety Report 20398109 (Version 2)
Quarter: 2022Q1

REPORT INFORMATION
  Report Type: Spontaneous
  Country: US (occurrence: US)
  Receive Date: 20220131
  Receipt Date: 20220201
  Transmission Date: 20220424
  Serious: No
  Sender: FDA-Public Use
  Company Number: US-ABBVIE-21K-163-3910208-00

PATIENT
  Age: 54 Year
  Sex: Female
  Weight: 133.48 kg

DRUGS (9)
  1. HUMIRA [Suspect]
     Active Substance: ADALIMUMAB
     Indication: Rheumatoid arthritis
     Route: 058
     Dates: end: 202104
  2. HUMIRA [Suspect]
     Active Substance: ADALIMUMAB
     Route: 058
     Dates: start: 202105
  3. LISINOPRIL [Concomitant]
     Active Substance: LISINOPRIL
     Indication: Blood pressure measurement
  4. DULOXETINE [Concomitant]
     Active Substance: DULOXETINE
     Indication: Fibromyalgia
  5. DULOXETINE [Concomitant]
     Active Substance: DULOXETINE
     Indication: Depression
  6. HYDROCODONE [Concomitant]
     Active Substance: HYDROCODONE
     Indication: Pain
  7. XANAX [Concomitant]
     Active Substance: ALPRAZOLAM
     Indication: Anxiety
  8. ROBAXIN [Concomitant]
     Active Substance: METHOCARBAMOL
     Indication: Product used for unknown indication
  9. OZEMPIC [Concomitant]
     Active Substance: SEMAGLUTIDE
     Indication: Glucose tolerance impaired

REACTIONS (6)
  - Sluggishness [Unknown]
  - Mobility decreased [Unknown]
  - Dysstasia [Unknown]
  - Feeling abnormal [Unknown]
  - Therapeutic response shortened [Unknown]
  - Arthralgia [Unknown]

NARRATIVE: CASE EVENT DATE: 20210401
